FAERS Safety Report 7357027-X (Version None)
Quarter: 2011Q1

REPORT INFORMATION
  Report Type: 
  Country: None (occurrence: None)
  Receive Date: 20110310
  Receipt Date: 20110310
  Transmission Date: 20110831
  Serious: Yes (Life-Threatening, Hospitalization)
  Sender: FDA-Public Use
  Company Number: None

PATIENT
  Age: 5 Year
  Sex: Female
  Weight: 19.2 kg

DRUGS (7)
  1. ZANTAC [Concomitant]
  2. RILONACEPT 220 MG REGENERON PHARMACEUTICALS [Suspect]
     Indication: JUVENILE ARTHRITIS
     Dosage: 38.72 MG ONCE A WEEK SQ
     Dates: start: 20090826, end: 20100505
  3. NAPROXEN [Concomitant]
  4. RISPERIDONE [Concomitant]
  5. ORAPRED [Concomitant]
  6. METHOTREXATE [Concomitant]
  7. INDOMETHACIN [Concomitant]

REACTIONS (17)
  - DYSPNOEA [None]
  - PULMONARY VALVE INCOMPETENCE [None]
  - HYPERTENSION [None]
  - PYREXIA [None]
  - ARTHRALGIA [None]
  - CHEST DISCOMFORT [None]
  - PERICARDIAL EFFUSION [None]
  - SERUM FERRITIN INCREASED [None]
  - INTERSTITIAL LUNG DISEASE [None]
  - PULMONARY HYPERTENSION [None]
  - GINGIVAL HYPERPLASIA [None]
  - HIRSUTISM [None]
  - FIBRIN D DIMER INCREASED [None]
  - PULMONARY VENO-OCCLUSIVE DISEASE [None]
  - PULMONARY VASCULAR DISORDER [None]
  - FATIGUE [None]
  - HAEMOGLOBIN DECREASED [None]
